FAERS Safety Report 7997489-8 (Version None)
Quarter: 2011Q4

REPORT INFORMATION
  Report Type: 
  Country: None (occurrence: None)
  Receive Date: 20111221
  Receipt Date: 20111221
  Transmission Date: 20120403
  Serious: Yes (Life-Threatening, Hospitalization)
  Sender: FDA-Public Use
  Company Number: None

PATIENT
  Age: 68 Year
  Sex: Female
  Weight: 113.39 kg

DRUGS (1)
  1. VIMOVO [Suspect]
     Indication: HIP FRACTURE
     Dosage: 1
     Route: 048
     Dates: start: 20111212, end: 20111213

REACTIONS (7)
  - ANAPHYLACTIC REACTION [None]
  - HAEMORRHAGE [None]
  - BLOOD UREA DECREASED [None]
  - CONFUSIONAL STATE [None]
  - BLOOD CREATININE DECREASED [None]
  - HYPOTENSION [None]
  - LOSS OF CONSCIOUSNESS [None]
